FAERS Safety Report 5644117-2 (Version None)
Quarter: 2008Q1

REPORT INFORMATION
  Report Type: 
  Country: None (occurrence: None)
  Receive Date: 20080226
  Receipt Date: 20080220
  Transmission Date: 20080703
  Serious: Yes (Other)
  Sender: FDA-Public Use
  Company Number: D0056201A

PATIENT
  Age: 54 Year
  Sex: Male

DRUGS (7)
  1. AVANDIA [Suspect]
     Dosage: 4 MG / SEE DOSAGE TEXT / ORAL
     Route: 048
  2. BISOPROLOL TABLET (BISOPROLOL) [Suspect]
     Dosage: 10 MG / SEE DOSAGE TEXT / ORAL
     Route: 048
  3. IBUPROFEN [Suspect]
     Dosage: 400 MG / SEE DOSAGE TEXT / ORAL
     Route: 048
  4. MIRTAZAPINE [Suspect]
     Dosage: 30 MG / SEE DOSAGE TEXT / ORAL
     Route: 048
  5. PAXIL [Suspect]
     Dosage: 20 MG / SEE DOSAGE TEXT / ORAL
     Route: 048
  6. LORAZEPAM [Suspect]
     Dosage: 2.5 MG / SEE DOSAGE TEXT / ORAL
     Route: 048
  7. CHLORPROTHIXENE TABLET (CHLORPROTHIXENE) [Suspect]
     Dosage: 15 MG / SEE DOSAGE TEXT / ORAL
     Route: 048

REACTIONS (5)
  - HYPERTENSION [None]
  - MULTIPLE DRUG OVERDOSE INTENTIONAL [None]
  - STUPOR [None]
  - SUICIDE ATTEMPT [None]
  - TACHYCARDIA [None]
